FAERS Safety Report 9683172 (Version 1)
Quarter: 2013Q4

REPORT INFORMATION
  Report Type: Spontaneous
  Country: US (occurrence: US)
  Receive Date: 20131112
  Receipt Date: 20131112
  Transmission Date: 20140711
  Serious: No
  Sender: FDA-Public Use
  Company Number: US-PFIZER INC-2013320862

PATIENT
  Age: 43 Year
  Sex: Female
  Weight: 94.79 kg

DRUGS (13)
  1. NEURONTIN [Suspect]
     Indication: NEUROPATHY PERIPHERAL
     Dosage: 100 MG, 3X/DAY
  2. NEURONTIN [Suspect]
     Dosage: 200 MG, 3X/DAY
  3. NEURONTIN [Suspect]
     Dosage: 300 MG, 3X/DAY
  4. SIMVASTATIN [Concomitant]
     Indication: BLOOD CHOLESTEROL INCREASED
     Dosage: 40 MG, 1X/DAY
  5. METOPROLOL [Concomitant]
     Indication: VENTRICULAR TACHYCARDIA
     Dosage: 50 MG, 2X/DAY
  6. METOPROLOL [Concomitant]
     Indication: BLOOD PRESSURE ABNORMAL
  7. LISINOPRIL [Concomitant]
     Indication: BLOOD PRESSURE ABNORMAL
     Dosage: 10 MG, 1X/DAY
  8. CYCLOBENZAPRINE [Concomitant]
     Indication: MUSCLE SPASMS
     Dosage: 10 MG, AS NEEDED
  9. NAPROXEN [Concomitant]
     Indication: PAIN
     Dosage: 500 MG, 2X/DAY
  10. VITAMIN C [Concomitant]
     Dosage: 500 MG, 1X/DAY
  11. VITAMIN D [Concomitant]
     Dosage: UNK
  12. CALCIUM [Concomitant]
     Dosage: UNK
  13. FISH OIL [Concomitant]
     Dosage: UNK

REACTIONS (7)
  - Drug ineffective [Unknown]
  - Gait disturbance [Not Recovered/Not Resolved]
  - Bedridden [Not Recovered/Not Resolved]
  - Pain in extremity [Not Recovered/Not Resolved]
  - Back pain [Not Recovered/Not Resolved]
  - Musculoskeletal pain [Not Recovered/Not Resolved]
  - Arthralgia [Not Recovered/Not Resolved]
